FAERS Safety Report 17185741 (Version 1)
Quarter: 2019Q4

REPORT INFORMATION
  Report Type: Spontaneous
  Country: DE (occurrence: DE)
  Receive Date: 20191220
  Receipt Date: 20191220
  Transmission Date: 20200122
  Serious: Yes (Death, Hospitalization, Other)
  Sender: FDA-Public Use
  Company Number: DE-MYLANLABS-02P-062-0188157-00

PATIENT
  Age: 73 Year
  Sex: Female

DRUGS (31)
  1. PANTOPRAZOLE [Suspect]
     Active Substance: PANTOPRAZOLE
     Dosage: 20MILLIGRAMQD
     Route: 048
     Dates: start: 20010506
  2. OMEPRAZOLE. [Suspect]
     Active Substance: OMEPRAZOLE
     Indication: PROPHYLAXIS
     Dosage: UNK
     Dates: start: 20010508, end: 20010508
  3. LOPERAMIDE [Suspect]
     Active Substance: LOPERAMIDE
     Indication: DIARRHOEA
     Dosage: 1DOSAGE FORMSQD
     Dates: start: 20010430, end: 20010430
  4. CIPROBAY                           /00697202/ [Suspect]
     Active Substance: CIPROFLOXACIN HYDROCHLORIDE
     Indication: CHOLANGITIS
     Dosage: 2 DOSAGE FORM, QD
     Route: 042
     Dates: start: 20010426, end: 20010501
  5. CLONT                              /00012501/ [Suspect]
     Active Substance: METRONIDAZOLE
     Indication: CHOLANGITIS
     Dosage: 800 MILLIGRAM, QD(400 MG,BID)
     Route: 048
     Dates: start: 20010415, end: 20010426
  6. VOMEX A [Suspect]
     Active Substance: DIMENHYDRINATE
     Indication: NAUSEA
     Dosage: AMPOULE
     Route: 042
     Dates: start: 20010508, end: 20010508
  7. ANTRA                              /00661201/ [Suspect]
     Active Substance: OMEPRAZOLE
     Indication: PROPHYLAXIS
     Dosage: 1 DOSAGE FORM, QD
     Route: 042
     Dates: start: 20010426, end: 20010505
  8. INSULIN [Suspect]
     Active Substance: INSULIN NOS
     Indication: PARENTERAL NUTRITION
     Dosage: UNK
     Dates: start: 20010415, end: 20010505
  9. INSULIN PROTAPHAN HUMAN [Suspect]
     Active Substance: INSULIN HUMAN
     Indication: DIABETES MELLITUS
     Dosage: 16IU-12IU-8IU
     Route: 058
     Dates: start: 20010415, end: 20010426
  10. FORTRAL /00052101/ [Suspect]
     Active Substance: PENTAZOCINE
     Indication: PAIN
     Dosage: AMPOULE
     Route: 042
     Dates: start: 20010508, end: 20010508
  11. MCP                                /00041902/ [Suspect]
     Active Substance: METOCLOPRAMIDE HYDROCHLORIDE
     Indication: VOMITING
     Dosage: 1 UNK
     Route: 042
     Dates: start: 20010508, end: 20010508
  12. DIMETINDENE MALEATE [Suspect]
     Active Substance: DIMETHINDENE MALEATE
     Dosage: 1AMPOULEQD
     Dates: start: 20010511, end: 20010512
  13. SOLU-DECORTIN-H [Suspect]
     Active Substance: PREDNISOLONE SODIUM SUCCINATE
     Indication: PRURITUS
     Dosage: 100MILLIGRAMQD
     Route: 042
     Dates: start: 20010511, end: 20010511
  14. ALDACTONE [Suspect]
     Active Substance: SPIRONOLACTONE
     Indication: OEDEMA
     Dosage: 100 MILLIGRAM, QD
     Route: 048
     Dates: start: 20010415, end: 20010425
  15. SODIUM CHLORIDE. [Concomitant]
     Active Substance: SODIUM CHLORIDE
     Dosage: 100 MILLILITER, QD (100 ML, SINGLE)
     Route: 042
     Dates: start: 20010508, end: 20010508
  16. HEPARIN [Suspect]
     Active Substance: HEPARIN SODIUM
     Indication: THROMBOSIS PROPHYLAXIS
     Dosage: 15000UNITBID
     Route: 058
     Dates: start: 20010426
  17. PANTOPRAZOLE [Suspect]
     Active Substance: PANTOPRAZOLE
     Dosage: 20 MILLIGRAM, QD
     Route: 048
     Dates: start: 20010415, end: 20010426
  18. JONOSTERIL                         /00351401/ [Concomitant]
     Active Substance: CALCIUM ACETATE\MAGNESIUM ACETATE\POTASSIUM ACETATE\SODIUM ACETATE\SODIUM CHLORI
     Dosage: 250 MILLILITER, QD
     Route: 042
     Dates: start: 20010415, end: 20010505
  19. CLONT                              /00012501/ [Suspect]
     Active Substance: METRONIDAZOLE
     Indication: CHOLANGITIS
     Dosage: 2 DOSAGE FORM, QD
     Route: 042
     Dates: start: 20010426, end: 20010501
  20. VOMEX A [Suspect]
     Active Substance: DIMENHYDRINATE
     Indication: VOMITING
  21. PANTOPRAZOLE [Suspect]
     Active Substance: PANTOPRAZOLE
     Indication: PRODUCT USED FOR UNKNOWN INDICATION
     Dosage: 20 MILLIGRAM, QD
     Route: 048
     Dates: start: 20010506
  22. KALIUMKLORID [Concomitant]
     Indication: HYPOKALAEMIA
     Dosage: UNK
     Route: 042
     Dates: start: 20010426, end: 20010501
  23. PANTOPRAZOLE [Suspect]
     Active Substance: PANTOPRAZOLE
     Indication: PROPHYLAXIS
     Dosage: 20MILLIGRAMQD
     Route: 048
     Dates: start: 20010415, end: 20010426
  24. CHOLSPASMIN /00512501/ [Suspect]
     Active Substance: HYMECROMONE
     Indication: PRODUCT USED FOR UNKNOWN INDICATION
     Dosage: 1 DOSAGE FORM, QD
     Route: 042
     Dates: start: 20010510
  25. POTASSIUM CHLORIDE. [Concomitant]
     Active Substance: POTASSIUM CHLORIDE
     Indication: HYPOKALAEMIA
     Dosage: 1 DOSAGE FORM, QD
     Route: 048
     Dates: start: 20010506
  26. CIPROBAY                           /00697202/ [Suspect]
     Active Substance: CIPROFLOXACIN HYDROCHLORIDE
     Indication: CHOLANGITIS
     Dosage: 500 MILLIGRAM, BID (1000 MG,QD)
     Route: 048
     Dates: start: 20010415, end: 20010426
  27. MCP                                /00041902/ [Suspect]
     Active Substance: METOCLOPRAMIDE HYDROCHLORIDE
     Indication: NAUSEA
     Dosage: 20DROPQD
     Route: 048
     Dates: start: 20010508, end: 20010508
  28. BAYPEN [Suspect]
     Active Substance: MEZLOCILLIN SODIUM
     Indication: CHOLANGITIS
     Dosage: 6 GRAM, QD(2 G,TID)
     Route: 042
     Dates: start: 20010428, end: 20010501
  29. ETILEFRINE [Suspect]
     Active Substance: ETILEFRINE
     Indication: HYPOTENSION
     Dosage: 30DROPQD
     Dates: start: 20010508, end: 20010508
  30. CARBIMAZOLE [Suspect]
     Active Substance: CARBIMAZOLE
     Indication: HYPERTHYROIDISM
     Dosage: 5 MILLIGRAM, QD
     Route: 048
  31. DIMETINDENE MALEATE [Suspect]
     Active Substance: DIMETHINDENE MALEATE
     Indication: PRURITUS
     Dosage: 1DOSAGE FORMSQD
     Route: 048
     Dates: start: 20010511, end: 20010511

REACTIONS (11)
  - Stevens-Johnson syndrome [Fatal]
  - Circulatory collapse [Fatal]
  - Cardiac arrest [Fatal]
  - Rash [Unknown]
  - Lip erosion [Unknown]
  - Skin lesion [Unknown]
  - Toxic epidermal necrolysis [Fatal]
  - Pruritus [Unknown]
  - Conjunctivitis [Unknown]
  - Blister [Unknown]
  - Skin exfoliation [Unknown]

NARRATIVE: CASE EVENT DATE: 20010511
